FAERS Safety Report 8457177-0 (Version None)
Quarter: 2012Q2

REPORT INFORMATION
  Report Type: 
  Country: None (occurrence: None)
  Receive Date: 20120621
  Receipt Date: 20120619
  Transmission Date: 20120825
  Serious: Yes (Other)
  Sender: FDA-Public Use
  Company Number: JP-ABBOTT-12P-087-0947951-00

PATIENT
  Age: 53 Year
  Sex: Female

DRUGS (7)
  1. MUCOSTA [Suspect]
     Indication: PRODUCT USED FOR UNKNOWN INDICATION
     Dosage: 300 MG DAILY
     Route: 048
     Dates: start: 20120601
  2. COLIOPAN [Suspect]
     Indication: PRODUCT USED FOR UNKNOWN INDICATION
     Dosage: 30 MG DAILY
     Route: 048
     Dates: start: 20120604
  3. CEFDINIR [Suspect]
     Indication: ABDOMINAL PAIN
  4. CEFAZOLIN SODIUM [Suspect]
     Indication: PRODUCT USED FOR UNKNOWN INDICATION
     Route: 048
     Dates: start: 20120604
  5. CEFDINIR [Suspect]
     Indication: ENTERITIS INFECTIOUS
     Dosage: 300 MG DAILY
     Route: 048
     Dates: start: 20120601, end: 20120605
  6. VOLTAREN [Suspect]
     Indication: PRODUCT USED FOR UNKNOWN INDICATION
     Dosage: 75 MG DAILY
     Route: 048
     Dates: start: 20120601
  7. ROCEPHIN [Suspect]
     Indication: PRODUCT USED FOR UNKNOWN INDICATION
     Dosage: 2 G DAILY
     Route: 041
     Dates: start: 20120602, end: 20120605

REACTIONS (1)
  - DRUG-INDUCED LIVER INJURY [None]
